FAERS Safety Report 7651434-3 (Version None)
Quarter: 2011Q3

REPORT INFORMATION
  Report Type: 
  Country: None (occurrence: None)
  Receive Date: 20110802
  Receipt Date: 20110722
  Transmission Date: 20111222
  Serious: Yes (Death, Other)
  Sender: FDA-Public Use
  Company Number: PHHY2011CZ65751

PATIENT
  Sex: Female

DRUGS (7)
  1. GLEEVEC [Suspect]
     Dosage: 600 MG, UNK
     Dates: start: 20050421, end: 20060403
  2. GLEEVEC [Suspect]
     Dosage: 600 MG, UNK
     Dates: start: 20050208, end: 20050404
  3. GLEEVEC [Suspect]
     Dosage: 400 MG, UNK
     Dates: start: 20060403, end: 20090607
  4. GLEEVEC [Suspect]
     Indication: CHRONIC MYELOID LEUKAEMIA
     Dosage: 600 MG, UNK
     Dates: start: 20050131, end: 20050202
  5. TASIGNA [Suspect]
     Indication: CHRONIC MYELOID LEUKAEMIA
     Dosage: 400 MG, BID
     Dates: start: 20090701
  6. ENAP [Concomitant]
  7. RHEFLUIN [Concomitant]

REACTIONS (5)
  - PERIPHERAL VASCULAR DISORDER [None]
  - PAIN IN EXTREMITY [None]
  - FEMORAL ARTERIAL STENOSIS [None]
  - CHRONIC MYELOID LEUKAEMIA [None]
  - ARTERITIS OBLITERANS [None]
